FAERS Safety Report 23454742 (Version 1)
Quarter: 2024Q1

REPORT INFORMATION
  Report Type: Spontaneous
  Country: US (occurrence: US)
  Receive Date: 20240130
  Receipt Date: 20240130
  Transmission Date: 20240410
  Serious: Yes (Hospitalization)
  Sender: FDA-Public Use
  Company Number: US-STRIDES ARCOLAB LIMITED-2022SP016780

PATIENT
  Age: 26 Year
  Sex: Male

DRUGS (16)
  1. METHOTREXATE [Suspect]
     Active Substance: METHOTREXATE
     Indication: Acute lymphocytic leukaemia
     Dosage: 15 MILLIGRAM PER WEEK
     Route: 037
  2. METHOTREXATE [Suspect]
     Active Substance: METHOTREXATE
     Dosage: 12 MILLIGRAM PER WEEK
     Route: 037
  3. BLINATUMOMAB [Suspect]
     Active Substance: BLINATUMOMAB
     Indication: Acute lymphocytic leukaemia
     Dosage: 28 MICROGRAM
     Route: 065
  4. RITUXIMAB [Concomitant]
     Active Substance: RITUXIMAB
     Indication: Acute lymphocytic leukaemia
     Dosage: UNK
     Route: 065
  5. RITUXIMAB [Concomitant]
     Active Substance: RITUXIMAB
     Dosage: UNK UNK, CYCLICAL  (THREE ADDITIONAL CYCLES OF R-HYPERCVAD WITH PONATINIB)
     Route: 065
  6. CYCLOPHOSPHAMIDE [Concomitant]
     Active Substance: CYCLOPHOSPHAMIDE
     Indication: Acute lymphocytic leukaemia
     Dosage: UNK
     Route: 065
  7. CYCLOPHOSPHAMIDE [Concomitant]
     Active Substance: CYCLOPHOSPHAMIDE
     Dosage: UNK UNK, CYCLICAL  (THREE ADDITIONAL CYCLES OF R-HYPERCVAD WITH PONATINIB)
     Route: 065
  8. VINCRISTINE [Concomitant]
     Active Substance: VINCRISTINE
     Indication: Acute lymphocytic leukaemia
     Dosage: UNK
     Route: 065
  9. VINCRISTINE [Concomitant]
     Active Substance: VINCRISTINE
     Dosage: UNK UNK, CYCLICAL  (THREE ADDITIONAL CYCLES OF R-HYPERCVAD WITH PONATINIB)
     Route: 065
  10. DOXORUBICIN [Concomitant]
     Active Substance: DOXORUBICIN
     Indication: Acute lymphocytic leukaemia
     Dosage: UNK
     Route: 065
  11. DOXORUBICIN [Concomitant]
     Active Substance: DOXORUBICIN
     Dosage: UNK UNK, CYCLICAL  (THREE ADDITIONAL CYCLES OF R-HYPERCVAD WITH PONATINIB)
     Route: 065
  12. DEXAMETHASONE [Concomitant]
     Active Substance: DEXAMETHASONE
     Indication: Acute lymphocytic leukaemia
     Dosage: UNK
     Route: 065
  13. DEXAMETHASONE [Concomitant]
     Active Substance: DEXAMETHASONE
     Dosage: UNK UNK, CYCLICAL (THREE ADDITIONAL CYCLES OF R-HYPERCVAD WITH PONATINIB)
     Route: 065
  14. DASATINIB [Concomitant]
     Active Substance: DASATINIB
     Indication: Acute lymphocytic leukaemia
     Dosage: UNK
     Route: 065
  15. PONATINIB [Concomitant]
     Active Substance: PONATINIB
     Indication: Acute lymphocytic leukaemia
     Dosage: UNK
     Route: 065
  16. PONATINIB [Concomitant]
     Active Substance: PONATINIB
     Dosage: UNK UNK, CYCLICAL (THREE ADDITIONAL CYCLES OF R-HYPERCVAD WITH PONATINIB)
     Route: 065

REACTIONS (1)
  - Neurotoxicity [Recovered/Resolved]
